FAERS Safety Report 5571608-5 (Version None)
Quarter: 2007Q4

REPORT INFORMATION
  Report Type: 
  Country: None (occurrence: None)
  Receive Date: 20071221
  Receipt Date: 20071214
  Transmission Date: 20080405
  Serious: Yes (Life-Threatening, Hospitalization)
  Sender: FDA-Public Use
  Company Number: US-BRISTOL-MYERS SQUIBB COMPANY-13785431

PATIENT
  Age: 56 Year
  Sex: Female

DRUGS (3)
  1. IPILIMUMAB [Suspect]
     Route: 042
     Dates: start: 20070301, end: 20070503
  2. COUMADIN [Suspect]
     Dates: start: 20051003
  3. LISINOPRIL [Concomitant]
     Dates: start: 20050907

REACTIONS (8)
  - ADRENAL INSUFFICIENCY [None]
  - BLOOD CREATININE INCREASED [None]
  - COAGULOPATHY [None]
  - DEHYDRATION [None]
  - HYPERKALAEMIA [None]
  - MENTAL STATUS CHANGES [None]
  - SEPSIS [None]
  - SUBDURAL HAEMATOMA [None]
